FAERS Safety Report 23754847 (Version 1)
Quarter: 2024Q2

REPORT INFORMATION
  Report Type: Spontaneous
  Country: BE (occurrence: BE)
  Receive Date: 20240418
  Receipt Date: 20240418
  Transmission Date: 20240715
  Serious: Yes (Hospitalization, Other)
  Sender: FDA-Public Use
  Company Number: BE-GLAXOSMITHKLINE-BE2024048090

PATIENT

DRUGS (2)
  1. DOSTARLIMAB [Suspect]
     Active Substance: DOSTARLIMAB
     Indication: Endometrial cancer
     Dosage: UNK
     Dates: start: 20231120
  2. CARBOPLATIN\PACLITAXEL [Suspect]
     Active Substance: CARBOPLATIN\PACLITAXEL
     Indication: Endometrial cancer
     Dosage: UNK

REACTIONS (2)
  - Febrile neutropenia [Recovering/Resolving]
  - Intervertebral discitis [Unknown]
